FAERS Safety Report 21027421 (Version 1)
Quarter: 2022Q2

REPORT INFORMATION
  Report Type: Spontaneous
  Country: US (occurrence: None)
  Receive Date: 20220630
  Receipt Date: 20220630
  Transmission Date: 20220720
  Serious: Yes (Other)
  Sender: FDA-Public Use
  Company Number: 2022A236758

PATIENT
  Sex: Male

DRUGS (1)
  1. FARXIGA [Suspect]
     Active Substance: DAPAGLIFLOZIN PROPANEDIOL
     Route: 048
     Dates: end: 20220623

REACTIONS (5)
  - Lip and/or oral cavity cancer [Unknown]
  - Oral disorder [Unknown]
  - Glossodynia [Unknown]
  - Oral discomfort [Unknown]
  - Asthenia [Unknown]
